FAERS Safety Report 8931817 (Version 1)
Quarter: 2020Q3

REPORT INFORMATION
  Report Type: Report from Study
  Country: US (occurrence: US)
  Receive Date: 20121128
  Receipt Date: 20121128
  Transmission Date: 20201105
  Serious: Yes (Other)
  Sender: FDA-Public Use
  Company Number: US-ROCHE-1156408

PATIENT
  Age: 68 Year
  Sex: Female

DRUGS (16)
  1. MISOPROSTOL. [Concomitant]
     Active Substance: MISOPROSTOL
     Indication: RHEUMATOID ARTHRITIS
     Route: 065
  2. METHOTREXATE. [Concomitant]
     Active Substance: METHOTREXATE
     Route: 065
  3. CYMBALTA [Concomitant]
     Active Substance: DULOXETINE HYDROCHLORIDE
  4. ATELVIA [Concomitant]
     Active Substance: RISEDRONATE SODIUM
  5. LEVOTHYROXIN [Concomitant]
     Active Substance: LEVOTHYROXINE
     Route: 065
  6. ACYCLOVIR. [Concomitant]
     Active Substance: ACYCLOVIR
  7. HUMIRA [Suspect]
     Active Substance: ADALIMUMAB
     Indication: RHEUMATOID ARTHRITIS
     Route: 065
  8. ZOLPIDEM [Concomitant]
     Active Substance: ZOLPIDEM TARTRATE
  9. FOLIC ACID. [Concomitant]
     Active Substance: FOLIC ACID
     Route: 065
  10. DICLOFENAC [Concomitant]
     Active Substance: DICLOFENAC
     Indication: RHEUMATOID ARTHRITIS
     Route: 065
  11. ABILIFY [Concomitant]
     Active Substance: ARIPIPRAZOLE
  12. SEROQUEL [Concomitant]
     Active Substance: QUETIAPINE FUMARATE
  13. FISH OIL [Concomitant]
     Active Substance: FISH OIL
  14. METOPROLOL. [Concomitant]
     Active Substance: METOPROLOL
     Route: 065
  15. IBANDRONIC ACID. [Suspect]
     Active Substance: IBANDRONIC ACID
     Indication: OSTEOPOROSIS
     Route: 065
  16. AMOXCLAV [Concomitant]

REACTIONS (9)
  - Osteoporosis [Unknown]
  - Fatigue [Unknown]
  - Bronchitis [Unknown]
  - Sleep apnoea syndrome [Unknown]
  - Drug ineffective [Unknown]
  - Herpes zoster [Recovered/Resolved]
  - Depression [Unknown]
  - Arthritis [Unknown]
  - Sputum discoloured [Unknown]

NARRATIVE: CASE EVENT DATE: 2007
